FAERS Safety Report 10929837 (Version 2)
Quarter: 2015Q2

REPORT INFORMATION
  Report Type: Report from Study
  Country: FI (occurrence: FI)
  Receive Date: 20150319
  Receipt Date: 20150623
  Transmission Date: 20150821
  Serious: Yes (Hospitalization)
  Sender: FDA-Public Use
  Company Number: FI-SA-2015SA033172

PATIENT
  Age: 71 Year
  Sex: Male
  Weight: 73 kg

DRUGS (12)
  1. NEBUPENT [Concomitant]
     Active Substance: PENTAMIDINE ISETHIONATE
     Indication: PROPHYLAXIS
     Dates: start: 20141222
  2. FLUDARABINE PHOSPHATE. [Suspect]
     Active Substance: FLUDARABINE PHOSPHATE
     Indication: ACUTE LYMPHOCYTIC LEUKAEMIA
     Route: 042
     Dates: start: 20141224, end: 20141228
  3. FILGRASTIM [Suspect]
     Active Substance: FILGRASTIM
     Indication: COLONY STIMULATING FACTOR THERAPY
     Route: 058
     Dates: start: 20141230, end: 20150116
  4. VENTOLINE DISKUS [Concomitant]
     Dates: start: 20141222
  5. VANCOMYCIN [Concomitant]
     Active Substance: VANCOMYCIN
     Indication: FEBRILE NEUTROPENIA
     Dates: start: 20150113, end: 20150113
  6. CYTARABINE. [Suspect]
     Active Substance: CYTARABINE
     Indication: ACUTE LYMPHOCYTIC LEUKAEMIA
     Route: 042
     Dates: start: 20141223, end: 20141228
  7. KALEORID [Concomitant]
     Active Substance: POTASSIUM CHLORIDE
     Indication: HYPOKALAEMIA
     Dates: start: 20150109, end: 20150119
  8. DALACIN [Concomitant]
     Active Substance: CLINDAMYCIN\CLINDAMYCIN PHOSPHATE
     Indication: PROPHYLAXIS
     Dates: start: 20150122, end: 20150125
  9. KALISOL [Concomitant]
     Indication: HYPOKALAEMIA
     Dates: start: 20150110, end: 20150116
  10. CANCIDAS [Concomitant]
     Active Substance: CASPOFUNGIN ACETATE
     Indication: FEBRILE NEUTROPENIA
     Dates: start: 20150110, end: 20150118
  11. MERONEM [Concomitant]
     Active Substance: MEROPENEM
     Indication: FEBRILE NEUTROPENIA
     Route: 042
     Dates: start: 20150110, end: 20150119
  12. AMORION [Concomitant]
     Indication: PROPHYLAXIS
     Dates: start: 20150122, end: 20150122

REACTIONS (3)
  - Liver abscess [Not Recovered/Not Resolved]
  - Bacterial infection [Recovered/Resolved]
  - Candida infection [Recovering/Resolving]

NARRATIVE: CASE EVENT DATE: 20150125
